FAERS Safety Report 12433359 (Version 3)
Quarter: 2016Q3

REPORT INFORMATION
  Report Type: Spontaneous
  Country: RU (occurrence: RU)
  Receive Date: 20160603
  Receipt Date: 20160809
  Transmission Date: 20161109
  Serious: Yes (Hospitalization, Other)
  Sender: FDA-Public Use
  Company Number: RU-BAYER-2016-107310

PATIENT
  Age: 43 Year
  Sex: Female

DRUGS (3)
  1. QLAIRA [Suspect]
     Active Substance: DIENOGEST\ESTRADIOL VALERATE
     Indication: GENITAL HAEMORRHAGE
  2. XARELTO [Suspect]
     Active Substance: RIVAROXABAN
     Indication: EMBOLISM
     Dosage: UNK UNK, BID
     Route: 048
     Dates: start: 20160506
  3. QLAIRA [Suspect]
     Active Substance: DIENOGEST\ESTRADIOL VALERATE
     Indication: CONTRACEPTION
     Dosage: UNK UNK, BID
     Route: 048
     Dates: start: 2014, end: 201605

REACTIONS (16)
  - Pulmonary hypertension [None]
  - Labelled drug-disease interaction medication error [None]
  - Heart rate increased [None]
  - Pulmonary embolism [None]
  - Cough [None]
  - Vena cava thrombosis [None]
  - Bronchitis chronic [None]
  - Uterine haemorrhage [Not Recovered/Not Resolved]
  - Chest discomfort [None]
  - Asthenia [None]
  - Aortic disorder [None]
  - Deep vein thrombosis [None]
  - Dyspnoea exertional [None]
  - Respiratory rate increased [None]
  - Chronic gastritis [None]
  - Bullous lung disease [None]

NARRATIVE: CASE EVENT DATE: 201602
